FAERS Safety Report 12296964 (Version 1)
Quarter: 2016Q2

REPORT INFORMATION
  Report Type: Spontaneous
  Country: KR (occurrence: KR)
  Receive Date: 20160422
  Receipt Date: 20160422
  Transmission Date: 20160815
  Serious: Yes (Other)
  Sender: FDA-Public Use
  Company Number: KR-FRESENIUS KABI-FK201602070

PATIENT
  Sex: Female

DRUGS (13)
  1. CARBOPLATIN. [Suspect]
     Active Substance: CARBOPLATIN
  2. CYTARABINE (MANUFACTURER UNKNOWN) [Suspect]
     Active Substance: CYTARABINE
     Indication: CONGENITAL RETINOBLASTOMA
     Route: 037
  3. DOXORUBICIN (MANUFACTURER UNKNOWN) [Suspect]
     Active Substance: DOXORUBICIN
     Indication: CONGENITAL RETINOBLASTOMA
     Route: 065
  4. ETOPOSIDE. [Suspect]
     Active Substance: ETOPOSIDE
     Indication: CONGENITAL RETINOBLASTOMA
  5. HYDROCORTISONE. [Suspect]
     Active Substance: HYDROCORTISONE
     Indication: CONGENITAL RETINOBLASTOMA
  6. FILGRASTIM [Suspect]
     Active Substance: FILGRASTIM
     Indication: HAEMATOPOIETIC STEM CELL MOBILISATION
  7. CYCLOPHOSPHAMIDE (MANUFACTURER UNKNOWN) [Suspect]
     Active Substance: CYCLOPHOSPHAMIDE
     Indication: CONGENITAL RETINOBLASTOMA
     Route: 065
  8. VINCRISTINE (MANUFACTURER UNKNOWN) [Suspect]
     Active Substance: VINCRISTINE
     Indication: CONGENITAL RETINOBLASTOMA
     Route: 065
  9. CARBOPLATIN. [Suspect]
     Active Substance: CARBOPLATIN
     Indication: CONGENITAL RETINOBLASTOMA
  10. ETOPOSIDE. [Suspect]
     Active Substance: ETOPOSIDE
  11. ETOPOSIDE. [Suspect]
     Active Substance: ETOPOSIDE
  12. METHOTREXATE (MANUFACTURER UNKNOWN) [Suspect]
     Active Substance: METHOTREXATE
     Indication: CONGENITAL RETINOBLASTOMA
     Route: 037
  13. THIOTEPA. [Suspect]
     Active Substance: THIOTEPA
     Indication: CONGENITAL RETINOBLASTOMA

REACTIONS (2)
  - Hypotension [Unknown]
  - Febrile neutropenia [Unknown]
